FAERS Safety Report 7223424-6 (Version None)
Quarter: 2011Q1

REPORT INFORMATION
  Report Type: 
  Country: None (occurrence: None)
  Receive Date: 20110112
  Receipt Date: 20100614
  Transmission Date: 20110831
  Serious: No
  Sender: FDA-Public Use
  Company Number: US-ALLERGAN-1007733US

PATIENT
  Sex: Female

DRUGS (8)
  1. COMBIGAN[R] [Concomitant]
  2. MULTI-VITAMIN [Concomitant]
  3. ASCORBIC ACID [Concomitant]
  4. TEARS HYDRATE [Concomitant]
  5. ACTONEL [Concomitant]
  6. RESTASIS [Suspect]
     Indication: DRY EYE
     Dosage: UNK
     Route: 047
  7. VITAMIN E [Concomitant]
  8. FISH OIL [Concomitant]

REACTIONS (3)
  - ERYTHEMA [None]
  - ERYTHEMA OF EYELID [None]
  - EYE IRRITATION [None]
